FAERS Safety Report 8168967-6 (Version None)
Quarter: 2012Q1

REPORT INFORMATION
  Report Type: 
  Country: None (occurrence: None)
  Receive Date: 20120227
  Receipt Date: 20120223
  Transmission Date: 20120608
  Serious: Yes (Other)
  Sender: FDA-Public Use
  Company Number: JP-ABBOTT-12P-087-0894961-00

PATIENT
  Sex: Female
  Weight: 37.4 kg

DRUGS (10)
  1. HUMIRA [Suspect]
     Dates: start: 20110425, end: 20110425
  2. TPN [Concomitant]
     Indication: CROHN'S DISEASE
     Route: 048
     Dates: start: 20080313
  3. RABEPRAZOLE SODIUM [Concomitant]
     Indication: GASTRITIS
     Route: 048
     Dates: start: 20100104
  4. CLOSTRIDIUM BUTYRICUM [Concomitant]
     Indication: CROHN'S DISEASE
     Route: 048
     Dates: start: 20071230
  5. HUMIRA [Suspect]
     Dates: start: 20110509, end: 20111121
  6. PREDNISOLONE [Concomitant]
     Indication: CROHN'S DISEASE
     Route: 048
  7. HUMIRA [Suspect]
     Indication: CROHN'S DISEASE
     Route: 058
     Dates: start: 20110408, end: 20110408
  8. HERBAL MEDICINE (DAI-KENCHU-TO) [Concomitant]
     Indication: CROHN'S DISEASE
     Route: 048
     Dates: start: 20110505
  9. ESTRADIOL [Concomitant]
     Indication: TURNER'S SYNDROME
     Route: 040
  10. ESTRADIOL [Concomitant]
     Route: 062
     Dates: start: 20100902

REACTIONS (1)
  - ALOPECIA [None]
